FAERS Safety Report 8420097-1 (Version None)
Quarter: 2012Q2

REPORT INFORMATION
  Report Type: 
  Country: None (occurrence: None)
  Receive Date: 20120607
  Receipt Date: 20120525
  Transmission Date: 20120825
  Serious: Yes (Congenital Anomaly)
  Sender: FDA-Public Use
  Company Number: GB-MYLANLABS-2012S1010797

PATIENT
  Sex: Male
  Weight: 3.3 kg

DRUGS (5)
  1. LAMOTRIGINE [Suspect]
     Route: 064
  2. PROCHLORPERAZINE [Concomitant]
     Route: 064
  3. VALPROIC ACID [Suspect]
     Route: 064
  4. LAMOTRIGINE [Suspect]
  5. CLOBAZAM [Suspect]
     Route: 064

REACTIONS (7)
  - HYPOSPADIAS [None]
  - WRIST DEFORMITY [None]
  - CONGENITAL DEFORMITY OF CLAVICLE [None]
  - LIMB REDUCTION DEFECT [None]
  - JOINT DISLOCATION [None]
  - HAND DEFORMITY [None]
  - MATERNAL EXPOSURE DURING PREGNANCY [None]
